FAERS Safety Report 9876265 (Version 2)
Quarter: 2014Q1

REPORT INFORMATION
  Report Type: Other
  Country: US (occurrence: US)
  Receive Date: 20140206
  Receipt Date: 20140206
  Transmission Date: 20141002
  Serious: No
  Sender: FDA-Public Use
  Company Number: US-ACORDA-ACO_35507_2013

PATIENT
  Sex: Male
  Weight: 90.7 kg

DRUGS (5)
  1. AMPYRA [Suspect]
     Indication: NYSTAGMUS
     Dosage: 10 MG, UNK
     Route: 065
     Dates: start: 20130312, end: 20130408
  2. XANAX [Concomitant]
     Indication: MYALGIA
     Dosage: 1 MG, X 4
     Dates: start: 201111
  3. LITHIUM [Concomitant]
     Indication: BIPOLAR DISORDER
     Dosage: 300 MG, X 4
     Dates: start: 1998
  4. LAMICTAL [Concomitant]
     Indication: BIPOLAR DISORDER
     Dosage: 300 UNK, X 1
     Dates: start: 2009
  5. TRAZODONE [Concomitant]
     Indication: BIPOLAR DISORDER
     Dosage: 50 UNK, X 1
     Dates: start: 2002

REACTIONS (1)
  - Tremor [Recovered/Resolved]
